FAERS Safety Report 16149475 (Version 2)
Quarter: 2019Q2

REPORT INFORMATION
  Report Type: Spontaneous
  Country: US (occurrence: US)
  Receive Date: 20190402
  Receipt Date: 20190509
  Transmission Date: 20190711
  Serious: No
  Sender: FDA-Public Use
  Company Number: US-BAYER-2019-061329

PATIENT
  Age: 12 Year
  Sex: Male
  Weight: 44 kg

DRUGS (2)
  1. MIRALAX [Suspect]
     Active Substance: POLYETHYLENE GLYCOL 3350
     Indication: BOWEL MOVEMENT IRREGULARITY
     Dosage: UNK
     Route: 048
     Dates: start: 20190324, end: 20190327
  2. PHILLIPS^ FIBER GOOD GUMMIES [Suspect]
     Active Substance: INULIN
     Dosage: UNK

REACTIONS (3)
  - Product taste abnormal [Unknown]
  - Abdominal pain upper [Unknown]
  - Product odour abnormal [None]

NARRATIVE: CASE EVENT DATE: 20190324
